FAERS Safety Report 9953560 (Version 3)
Quarter: 2014Q2

REPORT INFORMATION
  Report Type: Report from Study
  Country: US (occurrence: US)
  Receive Date: 20140304
  Receipt Date: 20140602
  Transmission Date: 20141212
  Serious: Yes (Death, Life-Threatening, Hospitalization, Other)
  Sender: FDA-Public Use
  Company Number: PHHO2010US16296

PATIENT
  Age: 35 Year
  Sex: Female
  Weight: 58.2 kg

DRUGS (6)
  1. SOM230 [Suspect]
     Indication: NEUROENDOCRINE TUMOUR
     Dosage: 60 MG, UNK
     Route: 030
     Dates: start: 20100825, end: 20110309
  2. NEXIUM [Concomitant]
     Indication: GASTRINOMA
     Dosage: 40 MG, UNK
     Route: 048
     Dates: start: 20090923
  3. ACTOS [Concomitant]
     Indication: DIABETES MELLITUS
     Dosage: 15 MG, QD
     Route: 048
     Dates: start: 20100218
  4. OXYCONTIN [Concomitant]
     Indication: VISCERAL PAIN
     Dosage: 10 MG, BID
     Route: 048
     Dates: start: 20101020
  5. OXYCODONE [Concomitant]
     Indication: VISCERAL PAIN
     Dosage: 10 MG, PRN
     Route: 048
     Dates: start: 20101020
  6. VIOKASE [Concomitant]
     Indication: ENZYME SUPPLEMENTATION
     Dosage: 1-3 TSP, PRN
     Route: 048
     Dates: start: 201002, end: 20110315

REACTIONS (7)
  - Malignant neoplasm progression [Fatal]
  - Hepatic failure [Fatal]
  - Hepatic encephalopathy [Not Recovered/Not Resolved]
  - Coagulopathy [Not Recovered/Not Resolved]
  - Back pain [Recovered/Resolved]
  - Duodenitis [Not Recovered/Not Resolved]
  - Oesophageal ulcer [Recovered/Resolved]
